FAERS Safety Report 14168684 (Version 1)
Quarter: 2017Q4

REPORT INFORMATION
  Report Type: Spontaneous
  Country: US (occurrence: None)
  Receive Date: 20171107
  Receipt Date: 20171107
  Transmission Date: 20180321
  Serious: Yes (Hospitalization)
  Sender: FDA-Public Use
  Company Number: None

PATIENT
  Age: 69 Year
  Sex: Male
  Weight: 101.42 kg

DRUGS (2)
  1. ASPIRIN. [Suspect]
     Active Substance: ASPIRIN
     Indication: STENT PLACEMENT
     Route: 048
  2. WARFARIN [Suspect]
     Active Substance: WARFARIN
     Indication: ATRIAL FIBRILLATION
     Route: 048
     Dates: start: 20140101

REACTIONS (3)
  - Acute kidney injury [None]
  - Gastric haemorrhage [None]
  - Hypotension [None]

NARRATIVE: CASE EVENT DATE: 20170918
